FAERS Safety Report 11584977 (Version 1)
Quarter: 2015Q4

REPORT INFORMATION
  Report Type: Spontaneous
  Country: US (occurrence: US)
  Receive Date: 20151001
  Receipt Date: 20151001
  Transmission Date: 20160304
  Serious: Yes (Other)
  Sender: FDA-Public Use
  Company Number: US-PFIZER INC-2015322187

PATIENT
  Age: 50 Year
  Sex: Female

DRUGS (2)
  1. XANAX [Suspect]
     Active Substance: ALPRAZOLAM
     Indication: SLEEP DISORDER
     Dosage: 7-10 MG PER DAY
  2. XANAX [Suspect]
     Active Substance: ALPRAZOLAM
     Indication: ANXIETY
     Dosage: 2-3 MG

REACTIONS (6)
  - Depression [Recovering/Resolving]
  - Drug dependence [Unknown]
  - Memory impairment [Unknown]
  - Intentional product misuse [Unknown]
  - Loss of consciousness [Unknown]
  - Drug tolerance [Unknown]
